FAERS Safety Report 10467294 (Version 3)
Quarter: 2014Q4

REPORT INFORMATION
  Report Type: Report from Study
  Country: DE (occurrence: DE)
  Receive Date: 20140922
  Receipt Date: 20141104
  Transmission Date: 20150528
  Serious: Yes (Hospitalization)
  Sender: FDA-Public Use
  Company Number: DE-ABBVIE-14K-062-1285264-00

PATIENT
  Age: 45 Year
  Sex: Female
  Weight: 95 kg

DRUGS (5)
  1. AZATHIOPRINE/ 6-MP [Concomitant]
     Indication: PRODUCT USED FOR UNKNOWN INDICATION
     Dosage: 2-2.5 MG/KG BODY WEIGHT
  2. SAB SIMPLEX [Concomitant]
     Indication: CROHN^S DISEASE
  3. AUBAGIO [Concomitant]
     Active Substance: TERIFLUNOMIDE
     Indication: CROHN^S DISEASE
  4. HUMIRA [Suspect]
     Active Substance: ADALIMUMAB
     Indication: CROHN^S DISEASE
     Route: 058
     Dates: start: 20071115
  5. HUMIRA [Suspect]
     Active Substance: ADALIMUMAB
     Route: 058
     Dates: start: 201206

REACTIONS (5)
  - Haematocrit decreased [Unknown]
  - Haemoglobin decreased [Unknown]
  - Blood chloride increased [Unknown]
  - Purging [Recovered/Resolved]
  - Drug effect decreased [Unknown]

NARRATIVE: CASE EVENT DATE: 20140617
